FAERS Safety Report 7101059-3 (Version None)
Quarter: 2010Q4

REPORT INFORMATION
  Report Type: 
  Country: None (occurrence: None)
  Receive Date: 20101113
  Receipt Date: 20100420
  Transmission Date: 20110411
  Serious: No
  Sender: FDA-Public Use
  Company Number: US-ALLERGAN-1005224US

PATIENT
  Sex: Female

DRUGS (1)
  1. BOTOX COSMETIC [Suspect]
     Indication: SKIN WRINKLING
     Dosage: UNK
     Route: 047
     Dates: start: 20100420, end: 20100420

REACTIONS (3)
  - ACCIDENTAL EXPOSURE [None]
  - EYE DISCHARGE [None]
  - OCULAR HYPERAEMIA [None]
